FAERS Safety Report 6203214-3 (Version None)
Quarter: 2009Q2

REPORT INFORMATION
  Report Type: 
  Country: None (occurrence: None)
  Receive Date: 20090527
  Receipt Date: 20090522
  Transmission Date: 20091009
  Serious: No
  Sender: FDA-Public Use
  Company Number: US-BAYER-200921639NA

PATIENT
  Age: 48 Year
  Sex: Female
  Weight: 61 kg

DRUGS (1)
  1. ANGELIQ [Suspect]
     Indication: HORMONE REPLACEMENT THERAPY
     Route: 048
     Dates: start: 20090415

REACTIONS (4)
  - BLOOD OESTROGEN INCREASED [None]
  - HOT FLUSH [None]
  - NIGHT SWEATS [None]
  - VAGINAL HAEMORRHAGE [None]
